FAERS Safety Report 11472735 (Version 1)
Quarter: 2015Q3

REPORT INFORMATION
  Report Type: Spontaneous
  Country: US (occurrence: US)
  Receive Date: 20150908
  Receipt Date: 20150908
  Transmission Date: 20151125
  Serious: No
  Sender: FDA-Public Use
  Company Number: US-TARO-2015TAR00245

PATIENT
  Sex: Male
  Weight: 86.17 kg

DRUGS (2)
  1. UNSPECIFIED PRODUCTS [Concomitant]
     Active Substance: UNSPECIFIED INGREDIENT
  2. METRONIDAZOLE GEL USP 0.75% [Suspect]
     Active Substance: METRONIDAZOLE
     Indication: ROSACEA
     Dosage: UNK UNK, 1X/DAY
     Route: 061
     Dates: start: 20150301, end: 20150305

REACTIONS (3)
  - Dermatitis [Recovered/Resolved]
  - Pruritus [Recovered/Resolved]
  - Rash [Recovered/Resolved]

NARRATIVE: CASE EVENT DATE: 201503
